FAERS Safety Report 9639832 (Version 3)
Quarter: 2014Q4

REPORT INFORMATION
  Report Type: Report from Study
  Country: NL (occurrence: NL)
  Receive Date: 20131023
  Receipt Date: 20141217
  Transmission Date: 20150529
  Serious: Yes (Hospitalization)
  Sender: FDA-Public Use
  Company Number: NL-BAYER-2013-125505

PATIENT
  Age: 57 Year
  Sex: Male

DRUGS (10)
  1. BETAFERON [Suspect]
     Active Substance: INTERFERON BETA-1B
     Dosage: 250 ?G, QOD
  2. ASASANTIN [Concomitant]
     Active Substance: ASPIRIN\DIPYRIDAMOLE
     Dosage: 200 MG, BID
  3. TAMSULOSIN HYDROCHLORIDE. [Concomitant]
     Active Substance: TAMSULOSIN HYDROCHLORIDE
     Dosage: 0.4 MG, QD
  4. FORLAX [Concomitant]
     Active Substance: POLYETHYLENE GLYCOL 4000
     Dosage: 20 G, QD
  5. HYDROCHLOROTHIAZIDE. [Concomitant]
     Active Substance: HYDROCHLOROTHIAZIDE
     Dosage: 50 MG, QD
  6. BETAFERON [Suspect]
     Active Substance: INTERFERON BETA-1B
     Dosage: 187.5 ?G, UNK
  7. LIPITOR [Concomitant]
     Active Substance: ATORVASTATIN CALCIUM
     Dosage: 10 MG, QD
  8. DIAZEPAM. [Concomitant]
     Active Substance: DIAZEPAM
     Dosage: 5 MG, QID
  9. ESOMEPRAZOLE [Concomitant]
     Active Substance: ESOMEPRAZOLE
     Dosage: 40 MG, QD
  10. LIORESAL [Concomitant]
     Active Substance: BACLOFEN
     Dosage: 5 MG, QID

REACTIONS (7)
  - Bone contusion [Recovered/Resolved]
  - Fall [Recovered/Resolved]
  - Feeling abnormal [None]
  - Injection site pain [None]
  - Influenza like illness [None]
  - Fatigue [Not Recovered/Not Resolved]
  - Bursitis [Not Recovered/Not Resolved]

NARRATIVE: CASE EVENT DATE: 20130925
